FAERS Safety Report 14648840 (Version 1)
Quarter: 2018Q1

REPORT INFORMATION
  Report Type: Spontaneous
  Country: US (occurrence: US)
  Receive Date: 20180316
  Receipt Date: 20180316
  Transmission Date: 20180509
  Serious: Yes (Other)
  Sender: FDA-Public Use
  Company Number: US-SA-2018SA072885

PATIENT
  Age: 26 Year
  Sex: Female

DRUGS (1)
  1. ICY HOT (MENTHOL) [Suspect]
     Active Substance: MENTHOL
     Route: 065

REACTIONS (1)
  - Loss of consciousness [Unknown]

NARRATIVE: CASE EVENT DATE: 20180308
